FAERS Safety Report 7410093-5 (Version None)
Quarter: 2011Q2

REPORT INFORMATION
  Report Type: 
  Country: None (occurrence: None)
  Receive Date: 20110412
  Receipt Date: 20110330
  Transmission Date: 20111010
  Serious: Yes (Hospitalization)
  Sender: FDA-Public Use
  Company Number: BR-ROCHE-717693

PATIENT
  Sex: Male
  Weight: 68 kg

DRUGS (5)
  1. KETOPROFEN [Concomitant]
     Indication: PROPHYLAXIS
     Dates: start: 20100608, end: 20100717
  2. CAPTOPRIL [Concomitant]
     Indication: HYPERTENSION
     Dosage: FREQUENCY: DAILY
     Dates: start: 20100608
  3. INTERFERON ALFA [Suspect]
     Indication: RENAL CELL CARCINOMA
     Dosage: DOSING AMOUNT: 9 MU
     Route: 058
     Dates: start: 20100608, end: 20100717
  4. PARACETAMOL [Concomitant]
     Indication: PROPHYLAXIS
     Dates: start: 20100608, end: 20100717
  5. BEVACIZUMAB [Suspect]
     Indication: RENAL CELL CARCINOMA
     Route: 042
     Dates: start: 20100608, end: 20100720

REACTIONS (2)
  - DIZZINESS [None]
  - CONFUSIONAL STATE [None]
